FAERS Safety Report 7241471-5 (Version None)
Quarter: 2011Q1

REPORT INFORMATION
  Report Type: 
  Country: None (occurrence: None)
  Receive Date: 20110124
  Receipt Date: 20110118
  Transmission Date: 20110831
  Serious: Yes (Other)
  Sender: FDA-Public Use
  Company Number: DE-PFIZER INC-2010112241

PATIENT
  Age: 27 Year
  Sex: Female
  Weight: 68.8 kg

DRUGS (2)
  1. MAGNETRANS FORTE [Concomitant]
     Dosage: UNK
     Dates: start: 20100611
  2. DEPO-PROVERA [Suspect]
     Dosage: UNK
     Route: 030
     Dates: start: 20100906, end: 20100906

REACTIONS (4)
  - POSTPARTUM HAEMORRHAGE [None]
  - WRONG DRUG ADMINISTERED [None]
  - HYDRONEPHROSIS [None]
  - ANAEMIA [None]
